FAERS Safety Report 7458620-6 (Version None)
Quarter: 2011Q2

REPORT INFORMATION
  Report Type: 
  Country: None (occurrence: None)
  Receive Date: 20110504
  Receipt Date: 20110421
  Transmission Date: 20111010
  Serious: No
  Sender: FDA-Public Use
  Company Number: AT-ELI_LILLY_AND_COMPANY-AT201103004521

PATIENT
  Age: 19 Year
  Sex: Male

DRUGS (3)
  1. ZYPREXA [Suspect]
     Indication: SCHIZOPHRENIA
     Dosage: 20 MG, QD
     Dates: start: 20110101, end: 20110310
  2. ABILIFY [Concomitant]
     Dosage: 15 MG, QD
     Dates: end: 20110311
  3. CIPRALEX [Concomitant]
     Dosage: 10 MG, QD

REACTIONS (2)
  - BLOOD CREATINE PHOSPHOKINASE INCREASED [None]
  - LEUKOPENIA [None]
